FAERS Safety Report 5236890-2 (Version None)
Quarter: 2007Q1

REPORT INFORMATION
  Report Type: 
  Country: None (occurrence: None)
  Receive Date: 20070213
  Receipt Date: 20070209
  Transmission Date: 20070707
  Serious: Yes (Life-Threatening, Hospitalization, Other)
  Sender: FDA-Public Use
  Company Number: PHBS2006BE19324

PATIENT
  Age: 66 Year
  Sex: Male
  Weight: 71 kg

DRUGS (1)
  1. ZOMETA [Suspect]
     Indication: METASTASES TO BONE
     Dosage: 4 MG, QMO
     Route: 065
     Dates: start: 20050301

REACTIONS (4)
  - CELLULITIS [None]
  - OSTEONECROSIS [None]
  - PHARYNGEAL OEDEMA [None]
  - TRACHEOSTOMY [None]
